FAERS Safety Report 10429883 (Version 1)
Quarter: 2014Q3

REPORT INFORMATION
  Report Type: Spontaneous
  Country: US (occurrence: US)
  Receive Date: 20140904
  Receipt Date: 20140904
  Transmission Date: 20150326
  Serious: Yes (Other)
  Sender: FDA-Public Use
  Company Number: US-BAYER-2014-128043

PATIENT
  Age: 32 Year
  Sex: Female

DRUGS (1)
  1. BEYAZ [Suspect]
     Active Substance: DROSPIRENONE\ETHINYL ESTRADIOL\LEVOMEFOLATE CALCIUM
     Route: 048

REACTIONS (8)
  - Deep vein thrombosis [None]
  - Pain [None]
  - Myocardial infarction [None]
  - Anhedonia [None]
  - Activities of daily living impaired [None]
  - Antiphospholipid syndrome [None]
  - Thrombosis [None]
  - Anxiety [None]

NARRATIVE: CASE EVENT DATE: 20111029
